FAERS Safety Report 5385524-5 (Version None)
Quarter: 2007Q3

REPORT INFORMATION
  Report Type: 
  Country: None (occurrence: None)
  Receive Date: 20070712
  Receipt Date: 20070709
  Transmission Date: 20080115
  Serious: Yes (Other)
  Sender: FDA-Public Use
  Company Number: A0660512A

PATIENT
  Age: 40 Year
  Sex: Male
  Weight: 81.8 kg

DRUGS (3)
  1. FLONASE [Suspect]
     Dosage: 4SPR PER DAY
     Route: 045
     Dates: end: 20070301
  2. FEXOFENADINE [Concomitant]
     Dosage: 1TAB PER DAY
     Route: 048
  3. PROTONIX [Concomitant]
     Dosage: 1TAB PER DAY
     Route: 048

REACTIONS (1)
  - RETINOPATHY [None]
